FAERS Safety Report 17508181 (Version 1)
Quarter: 2020Q1

REPORT INFORMATION
  Report Type: Spontaneous
  Country: US (occurrence: US)
  Receive Date: 20200306
  Receipt Date: 20200306
  Transmission Date: 20200409
  Serious: No
  Sender: FDA-Public Use
  Company Number: NVSC2020US064136

PATIENT
  Age: 70 Year
  Sex: Male

DRUGS (4)
  1. PIPERACILLIN SODIUM,TAZOBACTAM SODIUM [Suspect]
     Active Substance: PIPERACILLIN SODIUM\TAZOBACTAM SODIUM
     Indication: OSTEOMYELITIS
  2. POLYMYXIN [Suspect]
     Active Substance: POLYMYXIN
     Indication: PSEUDOMONAS INFECTION
     Dosage: UNK
     Route: 065
  3. PIPERACILLIN SODIUM,TAZOBACTAM SODIUM [Suspect]
     Active Substance: PIPERACILLIN SODIUM\TAZOBACTAM SODIUM
     Indication: PSEUDOMONAS INFECTION
     Dosage: UNK
     Route: 065
  4. POLYMYXIN [Suspect]
     Active Substance: POLYMYXIN
     Indication: OSTEOMYELITIS

REACTIONS (2)
  - Product use in unapproved indication [Unknown]
  - Drug resistance [Unknown]
